FAERS Safety Report 6963794-7 (Version None)
Quarter: 2010Q3

REPORT INFORMATION
  Report Type: 
  Country: None (occurrence: None)
  Receive Date: 20100902
  Receipt Date: 20100827
  Transmission Date: 20110219
  Serious: Yes (Other)
  Sender: FDA-Public Use
  Company Number: US-WATSON-2009-10064

PATIENT

DRUGS (6)
  1. ANDRODERM [Suspect]
     Indication: HYPOGONADISM MALE
     Dosage: 5 MG, Q 72 HOURS
     Route: 062
     Dates: start: 20061024
  2. AXITINIB [Suspect]
     Indication: METASTATIC RENAL CELL CARCINOMA
     Dosage: 5 MG, 2X/DAY
     Route: 048
     Dates: start: 20081002, end: 20090901
  3. MEGACE [Suspect]
     Indication: DECREASED APPETITE
     Dosage: 40 MG, 4X/DAY
     Route: 048
     Dates: start: 20080815
  4. FENOFIBRATE [Concomitant]
     Indication: PRODUCT USED FOR UNKNOWN INDICATION
     Dosage: UNK
     Route: 048
     Dates: start: 20080104
  5. MICARDIS HCT [Concomitant]
     Indication: PRODUCT USED FOR UNKNOWN INDICATION
     Dosage: UNK
     Route: 048
     Dates: start: 20080130
  6. LEVOTHYROXINE [Concomitant]
     Indication: PRODUCT USED FOR UNKNOWN INDICATION
     Dosage: UNK
     Route: 048
     Dates: start: 20061024

REACTIONS (1)
  - PULMONARY EMBOLISM [None]
